FAERS Safety Report 9013911 (Version 1)
Quarter: 2012Q4

REPORT INFORMATION
  Report Type: Spontaneous
  Country: US (occurrence: None)
  Receive Date: 20121231
  Receipt Date: 20121231
  Transmission Date: 20130627
  Serious: Yes (Other)
  Sender: FDA-Public Use
  Company Number: KAD201212-000534

PATIENT
  Sex: Female

DRUGS (2)
  1. TOPOTECAN [Suspect]
  2. CISPLATIN (CISPLATIN) (5 MILLIGRAM) (CISPLATIN) [Suspect]

REACTIONS (4)
  - Thrombocytopenia [None]
  - Toxicity to various agents [None]
  - Abdominal pain [None]
  - Gamma-glutamyltransferase increased [None]
